FAERS Safety Report 12361033 (Version 1)
Quarter: 2016Q2

REPORT INFORMATION
  Report Type: Spontaneous
  Country: US (occurrence: US)
  Receive Date: 20160512
  Receipt Date: 20160512
  Transmission Date: 20160815
  Serious: No
  Sender: FDA-Public Use
  Company Number: US-BAUSCH-BL-2016-004524

PATIENT
  Age: 59 Year
  Sex: Male
  Weight: 108.96 kg

DRUGS (3)
  1. PROLENSA [Concomitant]
     Active Substance: BROMFENAC SODIUM
     Indication: RETINAL DETACHMENT
     Route: 047
     Dates: start: 2015
  2. LATANOPROST OPHTHALMIC SOLUTION 0.005% [Suspect]
     Active Substance: LATANOPROST
     Indication: INTRAOCULAR PRESSURE TEST
     Route: 047
     Dates: start: 2015, end: 201602
  3. TIMOLOL. [Concomitant]
     Active Substance: TIMOLOL
     Indication: RETINAL DETACHMENT
     Route: 047
     Dates: start: 2015

REACTIONS (2)
  - No adverse event [Unknown]
  - Incorrect product storage [Unknown]
